FAERS Safety Report 13716626 (Version 2)
Quarter: 2017Q3

REPORT INFORMATION
  Report Type: Report from Study
  Country: JP (occurrence: JP)
  Receive Date: 20170705
  Receipt Date: 20170802
  Transmission Date: 20171127
  Serious: Yes (Other)
  Sender: FDA-Public Use
  Company Number: PHJP2017JP021584

PATIENT
  Age: 82 Year
  Sex: Female

DRUGS (4)
  1. ZYKADIA [Suspect]
     Active Substance: CERITINIB
     Indication: NON-SMALL CELL LUNG CANCER STAGE IV
     Dosage: 750 MG, QD
     Route: 048
     Dates: start: 20160607, end: 20160614
  2. ZYKADIA [Suspect]
     Active Substance: CERITINIB
     Dosage: 150 MG, QD
     Route: 048
     Dates: end: 201610
  3. ZYKADIA [Suspect]
     Active Substance: CERITINIB
     Dosage: UNK MG, QD
     Route: 048
     Dates: start: 20160719, end: 20160726
  4. ZYKADIA [Suspect]
     Active Substance: CERITINIB
     Dosage: UNK MG, QD
     Route: 048
     Dates: start: 20160705, end: 20160713

REACTIONS (2)
  - Renal impairment [Recovering/Resolving]
  - Blood creatinine increased [Unknown]

NARRATIVE: CASE EVENT DATE: 20160614
